FAERS Safety Report 4940095-X (Version None)
Quarter: 2006Q1

REPORT INFORMATION
  Report Type: 
  Country: None (occurrence: None)
  Receive Date: 20060310
  Receipt Date: 20060302
  Transmission Date: 20060701
  Serious: Yes (Other)
  Sender: FDA-Public Use
  Company Number: PHEH2006US02846

PATIENT
  Age: 57 Year
  Sex: Male
  Weight: 73.922 kg

DRUGS (8)
  1. NEURONTIN [Concomitant]
     Dosage: 900 MG, BID
  2. LASIX [Concomitant]
     Dosage: 20 MG, QD
  3. LOPRESSOR [Concomitant]
     Dosage: 50 MG, QD
  4. ALTACE [Concomitant]
     Dosage: 5 MG, UNK
  5. ASPIRIN [Concomitant]
     Dosage: 1/2 DAILY
  6. GLYBURIDE [Concomitant]
     Dosage: 5 MG, QD
  7. EXJADE [Suspect]
     Indication: MYELODYSPLASTIC SYNDROME
     Dosage: 1500 MG, QD
     Route: 048
     Dates: start: 20060127
  8. EXJADE [Suspect]
     Dosage: 1000 MG, UNK
     Route: 048
     Dates: end: 20060204

REACTIONS (4)
  - EJECTION FRACTION DECREASED [None]
  - EYE DISORDER [None]
  - FATIGUE [None]
  - NASAL CONGESTION [None]
